FAERS Safety Report 5225597-3 (Version None)
Quarter: 2007Q1

REPORT INFORMATION
  Report Type: 
  Country: None (occurrence: None)
  Receive Date: 20061201
  Receipt Date: 20060814
  Transmission Date: 20070707
  Serious: Yes (Other)
  Sender: FDA-Public Use
  Company Number: US200608003580

PATIENT
  Age: 59 Year
  Sex: Female

DRUGS (5)
  1. CYMBALTA [Suspect]
     Dosage: 60 MG, DAILY (1/D), UNK
     Dates: start: 20060622, end: 20060810
  2. LYDOL (PETHIDINE HYDROCHLORIDE) [Concomitant]
  3. KETAMINE (KETAMINE) [Concomitant]
  4. KETOPROFEN [Concomitant]
  5. AMITRIPTYLINE HCL [Concomitant]

REACTIONS (2)
  - ECCHYMOSIS [None]
  - RETINAL DETACHMENT [None]
